FAERS Safety Report 8045723-0 (Version None)
Quarter: 2012Q1

REPORT INFORMATION
  Report Type: 
  Country: None (occurrence: None)
  Receive Date: 20120113
  Receipt Date: 20120105
  Transmission Date: 20120608
  Serious: Yes (Other)
  Sender: FDA-Public Use
  Company Number: PHEH2012US000733

PATIENT
  Sex: Female

DRUGS (7)
  1. HYDROCHLOROTHIAZIDE [Concomitant]
     Dosage: UNK
  2. VIVELLE-DOT [Suspect]
     Dosage: 0.05 MG, TWICE WEEKLY
     Route: 062
  3. HYDROCODONE BITARTRATE [Concomitant]
     Dosage: UNK
  4. LISINOPRIL [Concomitant]
     Dosage: UNK
  5. VIVELLE-DOT [Suspect]
     Dosage: 0.05 MG, TWICE WEEKLY
     Route: 062
  6. POTASSIUM CHLORIDE [Concomitant]
     Dosage: UNK
  7. WELLBUTRIN XL [Concomitant]
     Dosage: UNK

REACTIONS (4)
  - FATIGUE [None]
  - HOT FLUSH [None]
  - WRONG TECHNIQUE IN DRUG USAGE PROCESS [None]
  - ANAEMIA [None]
